FAERS Safety Report 9922699 (Version 1)
Quarter: 2014Q1

REPORT INFORMATION
  Report Type: Spontaneous
  Country: US (occurrence: US)
  Receive Date: 20140225
  Receipt Date: 20140225
  Transmission Date: 20141002
  Serious: No
  Sender: FDA-Public Use
  Company Number: US-MYLANLABS-2013S1025366

PATIENT
  Age: 69 Year
  Sex: Female

DRUGS (11)
  1. METOPROLOL TARTRATE TABLETS, USP [Suspect]
     Indication: BLOOD PRESSURE
     Dosage: 1/2 BID
     Route: 048
     Dates: start: 201208, end: 201210
  2. METOPROLOL TARTRATE TABLETS, USP [Suspect]
     Indication: ARRHYTHMIA
     Dosage: 1/2 BID
     Route: 048
     Dates: start: 201208, end: 201210
  3. METOPROLOL TARTRATE TABLETS, USP [Suspect]
     Indication: BLOOD PRESSURE
     Dosage: 3/4 QAM, 1/2 QPM
     Route: 048
     Dates: start: 201210, end: 201210
  4. METOPROLOL TARTRATE TABLETS, USP [Suspect]
     Indication: ARRHYTHMIA
     Dosage: 3/4 QAM, 1/2 QPM
     Route: 048
     Dates: start: 201210, end: 201210
  5. METOPROLOL TARTRATE TABLETS, USP [Suspect]
     Indication: BLOOD PRESSURE
     Dosage: 3/4 QAM, 3/4 QPM
     Route: 048
     Dates: start: 201210, end: 201210
  6. METOPROLOL TARTRATE TABLETS, USP [Suspect]
     Indication: ARRHYTHMIA
     Dosage: 3/4 QAM, 3/4 QPM
     Route: 048
     Dates: start: 201210, end: 201210
  7. METOPROLOL TARTRATE TABLETS, USP [Suspect]
     Indication: BLOOD PRESSURE
     Route: 048
     Dates: start: 201210
  8. METOPROLOL TARTRATE TABLETS, USP [Suspect]
     Indication: ARRHYTHMIA
     Route: 048
     Dates: start: 201210
  9. CENTRUM SILVER [Suspect]
     Indication: VITAMIN SUPPLEMENTATION
     Dosage: DOSE UNIT:1 UNKNOWN
     Route: 048
     Dates: end: 201310
  10. DIOVAN [Concomitant]
     Route: 048
  11. XANAX [Concomitant]
     Dates: start: 201210

REACTIONS (3)
  - Erythema [Not Recovered/Not Resolved]
  - Pain in extremity [Not Recovered/Not Resolved]
  - Burning sensation [Not Recovered/Not Resolved]
